FAERS Safety Report 14259758 (Version 1)
Quarter: 2017Q4

REPORT INFORMATION
  Report Type: Spontaneous
  Country: GB (occurrence: GB)
  Receive Date: 20171207
  Receipt Date: 20171207
  Transmission Date: 20180321
  Serious: Yes (Other)
  Sender: FDA-Public Use
  Company Number: GB-PFIZER INC-2017519464

PATIENT
  Age: 32 Year
  Sex: Female
  Weight: 57 kg

DRUGS (4)
  1. CHAMPIX [Suspect]
     Active Substance: VARENICLINE TARTRATE
     Dosage: 1 MG, ONCE A DAY
     Route: 048
     Dates: start: 20171026
  2. CHAMPIX [Suspect]
     Active Substance: VARENICLINE TARTRATE
     Dosage: 0.5 MG, ONCE A DAY
     Route: 048
     Dates: start: 20170802
  3. CHAMPIX [Suspect]
     Active Substance: VARENICLINE TARTRATE
     Indication: SMOKING CESSATION THERAPY
     Dosage: 2 MG, ONCE A DAY
     Route: 048
     Dates: end: 20171025
  4. SERTRALINE [Concomitant]
     Active Substance: SERTRALINE HYDROCHLORIDE
     Indication: DEPRESSED MOOD
     Dosage: 100 MG, ONCE A DAY

REACTIONS (9)
  - Obsessive thoughts [Recovered/Resolved with Sequelae]
  - Nausea [Not Recovered/Not Resolved]
  - Anxiety [Unknown]
  - Sleep terror [Recovered/Resolved]
  - Condition aggravated [Unknown]
  - Abnormal behaviour [Unknown]
  - Disturbance in attention [Unknown]
  - Mania [Recovered/Resolved]
  - Thinking abnormal [Unknown]

NARRATIVE: CASE EVENT DATE: 20170802
